FAERS Safety Report 7214299-X (Version None)
Quarter: 2011Q1

REPORT INFORMATION
  Report Type: 
  Country: None (occurrence: None)
  Receive Date: 20110107
  Receipt Date: 20110104
  Transmission Date: 20110831
  Serious: Yes (Hospitalization)
  Sender: FDA-Public Use
  Company Number: FR-BRISTOL-MYERS SQUIBB COMPANY-15473846

PATIENT
  Age: 60 Year
  Sex: Female

DRUGS (13)
  1. TRIATEC [Concomitant]
     Dosage: 1DF=1.25.UNITS NOT SPECIFIED
  2. DIFFU-K [Concomitant]
  3. IMOVANE [Concomitant]
     Dosage: 1DF=7.5 UNITS NOT SPECIFIED
  4. AERIUS [Concomitant]
  5. DITROPAN [Concomitant]
  6. NEXIUM [Concomitant]
     Dosage: 1DF=20 UNITS NOT SPECIFIED
  7. COUMADIN [Suspect]
     Dosage: STRENGTH:2MG 1DF=2 AND HALF SCORED TABS
     Route: 048
  8. TRACLEER [Concomitant]
     Dosage: 1DF=125 UNITS NOT SPECIFIED
  9. LASIX [Concomitant]
     Dosage: 1DF=40 AND 20 UNITS NOT SPECIFIED
  10. ATARAX [Concomitant]
     Dosage: 1DF=100 UNITS NOT SPECIFIED
  11. SILDENAFIL [Concomitant]
  12. TARDYFERON [Concomitant]
     Dosage: 1DF=80 UNITS NOT SPECIFIED
  13. ALDACTONE [Concomitant]
     Dosage: 1DF=25 UNITS NOT SPECIFIED

REACTIONS (4)
  - MELAENA [None]
  - ANAEMIA [None]
  - HYPONATRAEMIA [None]
  - HYPOTENSION [None]
